FAERS Safety Report 5794995-1 (Version None)
Quarter: 2008Q2

REPORT INFORMATION
  Report Type: 
  Country: None (occurrence: None)
  Receive Date: 20080630
  Receipt Date: 20080619
  Transmission Date: 20081010
  Serious: Yes (Hospitalization)
  Sender: FDA-Public Use
  Company Number: US-WYE-H04630108

PATIENT
  Sex: Female
  Weight: 59.47 kg

DRUGS (3)
  1. EFFEXOR XR [Suspect]
     Indication: DEPRESSION
     Route: 048
     Dates: start: 20080101, end: 20080601
  2. DILTIAZEM HYDROCHLORIDE [Concomitant]
     Dosage: UNKNOWN
  3. AVALIDE [Concomitant]
     Dosage: UNKNOWN

REACTIONS (9)
  - CHEST DISCOMFORT [None]
  - DRUG WITHDRAWAL SYNDROME [None]
  - FAECES PALE [None]
  - FALL [None]
  - HEAD INJURY [None]
  - MALAISE [None]
  - TREMOR [None]
  - URINARY INCONTINENCE [None]
  - VOMITING [None]
